FAERS Safety Report 5154210-9 (Version None)
Quarter: 2006Q4

REPORT INFORMATION
  Report Type: 
  Country: None (occurrence: None)
  Receive Date: 20061114
  Receipt Date: 20061027
  Transmission Date: 20070319
  Serious: Yes (Other)
  Sender: FDA-Public Use
  Company Number: 15081

PATIENT
  Age: 25 Year
  Sex: Female

DRUGS (1)
  1. VINCRISTINE [Suspect]
     Indication: SARCOMA
     Dates: start: 19950101

REACTIONS (1)
  - INFERTILITY FEMALE [None]
